FAERS Safety Report 19550245 (Version 1)
Quarter: 2021Q3

REPORT INFORMATION
  Report Type: Spontaneous
  Country: SA (occurrence: SA)
  Receive Date: 20210714
  Receipt Date: 20210714
  Transmission Date: 20211014
  Serious: Yes (Other)
  Sender: FDA-Public Use
  Company Number: SA-BAYER-2021-169925

PATIENT
  Age: 36 Year
  Sex: Male

DRUGS (3)
  1. SORAFENIB (RAF KINASE INHIBITOR) [Suspect]
     Active Substance: SORAFENIB
     Indication: PAPILLARY THYROID CANCER
  2. RADIOACTIVE IODINE SOLUTION [Concomitant]
     Active Substance: SODIUM IODIDE I-131
  3. SORAFENIB (RAF KINASE INHIBITOR) [Suspect]
     Active Substance: SORAFENIB
     Indication: THYROID CANCER
     Dosage: 200 MG, BID

REACTIONS (19)
  - Metastases to bone [None]
  - Myelosuppression [None]
  - Soft tissue disorder [None]
  - Nodule [None]
  - Metastases to thorax [None]
  - Brain oedema [None]
  - Central nervous system lesion [Recovering/Resolving]
  - Off label use [None]
  - Cerebral haemorrhage [None]
  - Platelet count decreased [None]
  - Computerised tomogram head abnormal [None]
  - Drug intolerance [None]
  - Thyroid cancer [None]
  - Asthenia [None]
  - Gait inability [None]
  - Metastases to abdominal cavity [None]
  - Necrotic lymphadenopathy [None]
  - Abdominal pain [None]
  - Back pain [None]

NARRATIVE: CASE EVENT DATE: 20210509
